FAERS Safety Report 9174542 (Version 1)
Quarter: 2013Q1

REPORT INFORMATION
  Report Type: Spontaneous
  Country: US (occurrence: US)
  Receive Date: 20130320
  Receipt Date: 20130320
  Transmission Date: 20140127
  Serious: Yes (Other)
  Sender: FDA-Public Use
  Company Number: US-ALLERGAN-1303941US

PATIENT
  Age: 50 Year
  Sex: Female

DRUGS (4)
  1. BOTOX COSMETIC [Suspect]
     Indication: SKIN WRINKLING
     Dosage: 24 UNITS, SINGLE
     Route: 030
     Dates: start: 20130204, end: 20130204
  2. BOTOX COSMETIC [Suspect]
     Indication: SKIN WRINKLING
  3. ENBREL [Concomitant]
     Indication: PSORIASIS
  4. HUMIRA [Concomitant]
     Indication: PSORIASIS

REACTIONS (1)
  - Face oedema [Recovered/Resolved]
